FAERS Safety Report 18386359 (Version 2)
Quarter: 2020Q4

REPORT INFORMATION
  Report Type: Spontaneous
  Country: JP (occurrence: JP)
  Receive Date: 20201015
  Receipt Date: 20201022
  Transmission Date: 20210114
  Serious: Yes (Death, Other)
  Sender: FDA-Public Use
  Company Number: JP-PFIZER INC-2020394137

PATIENT
  Sex: Female
  Weight: 40 kg

DRUGS (9)
  1. VANCOMYCIN HYDROCHLORIDE. [Concomitant]
     Active Substance: VANCOMYCIN HYDROCHLORIDE
  2. TEICOPLANIN [Concomitant]
     Active Substance: TEICOPLANIN
  3. METHOTREXATE. [Suspect]
     Active Substance: METHOTREXATE
     Dosage: 5 MG
  4. LEUCOVORIN. [Concomitant]
     Active Substance: LEUCOVORIN
     Dosage: UNK MG
  5. CYLOCIDE [Concomitant]
     Active Substance: CYTARABINE
     Dosage: DOUBLE DOSE FOR 12 DAYS
  6. ENDOXAN [Concomitant]
     Active Substance: CYCLOPHOSPHAMIDE
     Dosage: UNK
     Dates: start: 202003
  7. CEFEPIME [Concomitant]
     Active Substance: CEFEPIME HYDROCHLORIDE
  8. METHOTREXATE. [Suspect]
     Active Substance: METHOTREXATE
     Dosage: 4000 MG, FOR AROUND 2 DAYS
     Dates: start: 202005
  9. FLUCONAZOLE. [Concomitant]
     Active Substance: FLUCONAZOLE
     Route: 048

REACTIONS (13)
  - Disseminated intravascular coagulation [Unknown]
  - Candida infection [Unknown]
  - Infection [Fatal]
  - Fungal infection [Unknown]
  - Dyspnoea [Unknown]
  - Cytomegalovirus infection [Unknown]
  - Aspergillus infection [Unknown]
  - Bacterial infection [Unknown]
  - Glaucoma [Unknown]
  - Staphylococcal infection [Not Recovered/Not Resolved]
  - Viral infection [Unknown]
  - Lymphocyte count decreased [Unknown]
  - Neoplasm progression [Unknown]

NARRATIVE: CASE EVENT DATE: 202003
